FAERS Safety Report 13207851 (Version 1)
Quarter: 2017Q1

REPORT INFORMATION
  Report Type: Spontaneous
  Country: US (occurrence: US)
  Receive Date: 20170208
  Receipt Date: 20170208
  Transmission Date: 20170428
  Serious: No
  Sender: FDA-Public Use
  Company Number: US-AMGEN-USASP2016152642

PATIENT
  Age: 74 Year
  Sex: Female

DRUGS (5)
  1. NEULASTA [Suspect]
     Active Substance: PEGFILGRASTIM
     Indication: NEUTROPENIA
     Dosage: 6 MG, UNK
     Route: 058
  2. CYCLOPHOSPHAMIDE. [Concomitant]
     Active Substance: CYCLOPHOSPHAMIDE
     Indication: BREAST CANCER
     Dosage: UNK, FOUR CYCLES
     Route: 065
  3. CLARITIN [Suspect]
     Active Substance: LORATADINE
     Indication: PAIN IN EXTREMITY
     Dosage: UNK
     Route: 065
  4. DOCETAXEL. [Concomitant]
     Active Substance: DOCETAXEL
     Indication: BREAST CANCER
     Dosage: UNK, FOUR CYCLES
     Route: 065
  5. HYDROCORTISONE. [Concomitant]
     Active Substance: HYDROCORTISONE

REACTIONS (5)
  - Discomfort [Not Recovered/Not Resolved]
  - Pain in extremity [Unknown]
  - Epistaxis [Unknown]
  - Fatigue [Unknown]
  - Sinus disorder [Unknown]

NARRATIVE: CASE EVENT DATE: 20161030
